FAERS Safety Report 7897211-X (Version None)
Quarter: 2011Q4

REPORT INFORMATION
  Report Type: 
  Country: None (occurrence: None)
  Receive Date: 20111107
  Receipt Date: 20111104
  Transmission Date: 20120403
  Serious: Yes (Life-Threatening)
  Sender: FDA-Public Use
  Company Number: FR-B.I. PHARMACEUTICALS,INC./RIDGEFIELD-2011-FF-01022FF

PATIENT
  Sex: Female

DRUGS (15)
  1. XOLAIR [Suspect]
     Indication: ASTHMA
     Dosage: 20 MG
     Route: 058
     Dates: start: 20080710, end: 20100805
  2. FENOFIBRATE [Suspect]
  3. UTEPLEX [Suspect]
  4. SYMBICORT [Suspect]
     Indication: ASTHMA
     Dosage: 400/12 ?G
     Route: 055
     Dates: start: 20100101
  5. CACIT VITAMINE D3 [Suspect]
  6. SINGULAIR [Suspect]
     Indication: ASTHMA
     Dosage: 10 MG
     Route: 048
  7. ACETAMINOPHEN [Suspect]
  8. PREDNISONE [Suspect]
     Indication: ASTHMA
     Dosage: 20 MG
     Route: 048
     Dates: start: 20060101
  9. BRICANYL [Suspect]
     Indication: ASTHMA
     Dosage: 30 MG
     Route: 055
     Dates: start: 20080101
  10. PROTELOS [Suspect]
     Indication: OSTEOPOROSIS
     Route: 048
     Dates: start: 20100101
  11. ALDACTONE [Suspect]
     Dosage: 25 MG
  12. PANTOPRAZOLE SODIUM [Suspect]
     Dosage: 40 MG
  13. ATROVENT [Suspect]
     Indication: ASTHMA
     Dosage: 1.5 MG
     Route: 055
     Dates: start: 20080101
  14. DEDROGYL [Suspect]
  15. DESLORATADINE [Suspect]

REACTIONS (2)
  - LUNG NEOPLASM MALIGNANT [None]
  - LUNG NEOPLASM [None]
